FAERS Safety Report 5296813-7 (Version None)
Quarter: 2007Q2

REPORT INFORMATION
  Report Type: 
  Country: None (occurrence: None)
  Receive Date: 20070413
  Receipt Date: 20070403
  Transmission Date: 20071010
  Serious: Yes (Hospitalization, Other)
  Sender: FDA-Public Use
  Company Number: US-PFIZER INC-2007027526

PATIENT
  Age: 58 Year
  Sex: Female
  Weight: 90.7 kg

DRUGS (6)
  1. CHANTIX [Suspect]
     Indication: SMOKING CESSATION THERAPY
  2. CLONAZEPAM [Concomitant]
  3. GLUCOVANCE [Concomitant]
  4. AVANDIA [Concomitant]
  5. VYTORIN [Concomitant]
  6. LITHIUM CARBONATE [Concomitant]

REACTIONS (8)
  - ABASIA [None]
  - ANTIPSYCHOTIC DRUG LEVEL INCREASED [None]
  - BIPOLAR DISORDER [None]
  - DIZZINESS [None]
  - DYSPNOEA [None]
  - MALAISE [None]
  - MYALGIA [None]
  - NAUSEA [None]
